FAERS Safety Report 15101839 (Version 1)
Quarter: 2018Q3

REPORT INFORMATION
  Report Type: Spontaneous
  Country: JP (occurrence: JP)
  Receive Date: 20180703
  Receipt Date: 20180703
  Transmission Date: 20181010
  Serious: Yes (Other)
  Sender: FDA-Public Use
  Company Number: JP-PFIZER INC-2018260912

PATIENT

DRUGS (5)
  1. HEPARIN [Concomitant]
     Active Substance: HEPARIN SODIUM
     Dosage: UNK
  2. DALTEPARIN SODIUM [Suspect]
     Active Substance: DALTEPARIN SODIUM
     Dosage: UNK
  3. ANACT C [Suspect]
     Active Substance: PROTEIN C
     Indication: PURPURA FULMINANS
     Dosage: UNK
  4. SELENICA [Suspect]
     Active Substance: SELENIUM
     Dosage: UNK
  5. WARFARIN [Concomitant]
     Active Substance: WARFARIN
     Dosage: UNK

REACTIONS (1)
  - Purpura fulminans [Unknown]
